FAERS Safety Report 5714340-7 (Version None)
Quarter: 2008Q2

REPORT INFORMATION
  Report Type: 
  Country: None (occurrence: None)
  Receive Date: 20080423
  Receipt Date: 20080414
  Transmission Date: 20081010
  Serious: Yes (Hospitalization)
  Sender: FDA-Public Use
  Company Number: CA-JNJFOC-20080403888

PATIENT
  Sex: Female
  Weight: 82 kg

DRUGS (12)
  1. REMICADE [Suspect]
     Dosage: 8TH INFUSION
     Route: 042
  2. REMICADE [Suspect]
     Dosage: 7TH INFUSION
     Route: 042
  3. REMICADE [Suspect]
     Dosage: 6TH INFUSION
     Route: 042
  4. REMICADE [Suspect]
     Dosage: 5TH INFUSION
     Route: 042
  5. REMICADE [Suspect]
     Dosage: 4TH INFUSION
     Route: 042
  6. REMICADE [Suspect]
     Dosage: 3RD INFUSION
     Route: 042
  7. REMICADE [Suspect]
     Dosage: 2ND INFUSION
     Route: 042
  8. REMICADE [Suspect]
     Indication: RHEUMATOID ARTHRITIS
     Dosage: 1ST INFUSION
     Route: 042
  9. ASPIRIN [Concomitant]
     Dosage: ^HAD STOPPED FOR 2 WEEKS ALL OTHER MEDS^
  10. SOTALOL HCL [Concomitant]
     Dosage: ^1/2 OF 80 MG TABLET^
  11. SYNTHROID [Concomitant]
  12. ACCURETIC [Concomitant]
     Indication: HYPERTENSION
     Dosage: DOSE: 20-12.5 MG

REACTIONS (1)
  - TOE OPERATION [None]
